FAERS Safety Report 5292620-X (Version None)
Quarter: 2007Q2

REPORT INFORMATION
  Report Type: 
  Country: None (occurrence: None)
  Receive Date: 20070404
  Receipt Date: 20070321
  Transmission Date: 20071010
  Serious: Yes (Hospitalization)
  Sender: FDA-Public Use
  Company Number: A-CH2007-14660

PATIENT
  Age: 87 Year
  Sex: Female

DRUGS (2)
  1. TRACLEER [Suspect]
     Indication: PULMONARY HYPERTENSION
     Dosage: 125 MG, BID, ORAL
     Route: 048
  2. LASIX [Concomitant]

REACTIONS (8)
  - ARRHYTHMIA [None]
  - ATRIAL FIBRILLATION [None]
  - BLOOD CREATININE INCREASED [None]
  - BLOOD UREA INCREASED [None]
  - CARDIAC FAILURE [None]
  - CHOLANGITIS [None]
  - HAEMOGLOBIN INCREASED [None]
  - OEDEMA PERIPHERAL [None]
